FAERS Safety Report 22080425 (Version 2)
Quarter: 2023Q2

REPORT INFORMATION
  Report Type: Report from Study
  Country: US (occurrence: US)
  Receive Date: 20230309
  Receipt Date: 20230505
  Transmission Date: 20230722
  Serious: No
  Sender: FDA-Public Use
  Company Number: US-002147023-NVSC2023US053179

PATIENT
  Sex: Female

DRUGS (1)
  1. ENTRESTO [Suspect]
     Active Substance: SACUBITRIL\VALSARTAN
     Indication: Product used for unknown indication
     Dosage: 1 DOSAGE FORM, BID (49/51 MG)
     Route: 048

REACTIONS (7)
  - Fluid retention [Unknown]
  - Anxiety [Unknown]
  - Dysgeusia [Unknown]
  - Pain in extremity [Unknown]
  - Insomnia [Unknown]
  - Peripheral swelling [Unknown]
  - Pruritus [Unknown]
